FAERS Safety Report 4677172-7 (Version None)
Quarter: 2005Q2

REPORT INFORMATION
  Report Type: 
  Country: None (occurrence: None)
  Receive Date: 20050527
  Receipt Date: 20050527
  Transmission Date: 20051028
  Serious: Yes (Hospitalization)
  Sender: FDA-Public Use
  Company Number: None

PATIENT
  Age: 76 Year
  Sex: Male
  Weight: 70.3075 kg

DRUGS (4)
  1. GAMMAGARD S/D [Suspect]
     Dosage: 28 GM (373 ML) IV OVER 4 HRS/CAP I 5HRS QD X 5 DAYS
     Dates: start: 20050523
  2. ACETAMINOPHEN [Concomitant]
  3. DIPHENHYDRAMINE HCL [Concomitant]
  4. BENICAR HCT [Concomitant]

REACTIONS (3)
  - BLOOD PRESSURE SYSTOLIC INCREASED [None]
  - VISION BLURRED [None]
  - VISUAL ACUITY REDUCED [None]
